FAERS Safety Report 8448096-4 (Version None)
Quarter: 2012Q2

REPORT INFORMATION
  Report Type: 
  Country: None (occurrence: None)
  Receive Date: 20120619
  Receipt Date: 20120607
  Transmission Date: 20120825
  Serious: Yes (Other)
  Sender: FDA-Public Use
  Company Number: FR-ELI_LILLY_AND_COMPANY-FR201206003040

PATIENT
  Age: 80 Year
  Sex: Female
  Weight: 58 kg

DRUGS (1)
  1. GEMZAR [Suspect]
     Indication: PANCREATIC CARCINOMA METASTATIC
     Dosage: 1600 MG, UNK
     Route: 042
     Dates: start: 20120531

REACTIONS (5)
  - LEUKOPENIA [None]
  - VOMITING [None]
  - RENAL DISORDER [None]
  - PYREXIA [None]
  - ABDOMINAL PAIN LOWER [None]
